FAERS Safety Report 9008895 (Version 1)
Quarter: 2013Q1

REPORT INFORMATION
  Report Type: Spontaneous
  Country: US (occurrence: US)
  Receive Date: 20130111
  Receipt Date: 20130111
  Transmission Date: 20140127
  Serious: Yes (Other)
  Sender: FDA-Public Use
  Company Number: US-009507513-1301USA003962

PATIENT
  Sex: Female

DRUGS (3)
  1. PEGINTRON [Suspect]
     Indication: HEPATITIS C
     Dosage: UNK
     Route: 058
     Dates: start: 20120126, end: 20120809
  2. REBETOL [Suspect]
     Indication: HEPATITIS C
     Dosage: UNK
     Route: 048
     Dates: start: 20120126, end: 20120809
  3. VICTRELIS [Suspect]
     Indication: HEPATITIS C
     Dosage: UNK
     Route: 048
     Dates: start: 20120223, end: 20120809

REACTIONS (9)
  - Angina pectoris [Unknown]
  - Bedridden [Unknown]
  - Weight decreased [Unknown]
  - Food craving [Unknown]
  - Weight increased [Unknown]
  - Nasopharyngitis [Unknown]
  - Viral infection [Unknown]
  - Memory impairment [Unknown]
  - Cardiac disorder [Unknown]
